FAERS Safety Report 10064705 (Version 1)
Quarter: 2014Q1

REPORT INFORMATION
  Report Type: Spontaneous
  Country: US (occurrence: None)
  Receive Date: 20140328
  Receipt Date: 20140328
  Transmission Date: 20141002
  Serious: No
  Sender: FDA-Public Use
  Company Number: 1000053158

PATIENT
  Age: 47 Year
  Sex: Female

DRUGS (1)
  1. LINZESS [Suspect]
     Indication: CONSTIPATION
     Route: 048
     Dates: start: 201401, end: 201401

REACTIONS (3)
  - Nausea [None]
  - Chest pain [None]
  - Hyperhidrosis [None]
